APPROVED DRUG PRODUCT: LORAZEPAM
Active Ingredient: LORAZEPAM
Strength: 1MG
Dosage Form/Route: TABLET;ORAL
Application: A071591 | Product #003
Applicant: CHARTWELL RX SCIENCES LLC
Approved: Oct 13, 1987 | RLD: No | RS: No | Type: DISCN